FAERS Safety Report 5308022-3 (Version None)
Quarter: 2007Q1

REPORT INFORMATION
  Report Type: 
  Country: None (occurrence: None)
  Receive Date: 20070130
  Receipt Date: 20060906
  Transmission Date: 20070707
  Serious: Yes (Other)
  Sender: FDA-Public Use
  Company Number: 455297

PATIENT
  Age: 55 Year
  Sex: Female
  Weight: 58.5 kg

DRUGS (7)
  1. COPEGUS [Suspect]
     Indication: HEPATITIS C VIRUS
     Dosage: 400 MG 2 PER DAY ORAL
     Route: 048
     Dates: start: 20060531, end: 20060727
  2. PEGASYS [Suspect]
     Indication: HEPATITIS C VIRUS
     Dosage: 180 MCG 1 PER WEEK OTHER
     Dates: start: 20060531, end: 20060629
  3. ALBUTEROL [Concomitant]
  4. SPIRIVA [Concomitant]
  5. HYDROCHLOROTHIAZIDE/TRIAMTERENE (HYDROCHLOROTHIAZIDE/TRIAMTERENE) [Concomitant]
  6. OMEPRAZOLE [Concomitant]
  7. TRAMADOL HCL [Concomitant]

REACTIONS (1)
  - ANAEMIA [None]
